FAERS Safety Report 4560715-1 (Version None)
Quarter: 2005Q1

REPORT INFORMATION
  Report Type: 
  Country: None (occurrence: None)
  Receive Date: 20050126
  Receipt Date: 20050114
  Transmission Date: 20050727
  Serious: Yes (Hospitalization)
  Sender: FDA-Public Use
  Company Number: JP-JNJFOC-20041201278

PATIENT
  Sex: Female
  Weight: 64.5 kg

DRUGS (11)
  1. REMICADE [Suspect]
     Route: 042
  2. REMICADE [Suspect]
     Route: 042
  3. REMICADE [Suspect]
     Indication: RHEUMATOID ARTHRITIS
     Dosage: FIRST DOSE
     Route: 042
  4. RHEUMATREX [Suspect]
     Route: 049
  5. INFLUENZA VACCINE [Concomitant]
  6. OSTELUC [Concomitant]
     Indication: RHEUMATOID ARTHRITIS
     Route: 049
  7. SOLON [Concomitant]
     Route: 049
  8. ENPYNASE [Concomitant]
     Route: 049
  9. VITAMIN D3 [Concomitant]
     Route: 049
  10. CORONAMOL [Concomitant]
     Route: 049
  11. ZYRTEC [Concomitant]
     Route: 049

REACTIONS (1)
  - PNEUMOCYSTIS JIROVECI PNEUMONIA [None]
